FAERS Safety Report 5887555-5 (Version None)
Quarter: 2008Q3

REPORT INFORMATION
  Report Type: 
  Country: None (occurrence: None)
  Receive Date: 20080917
  Receipt Date: 20080917
  Transmission Date: 20090109
  Serious: Yes (Other)
  Sender: FDA-Public Use
  Company Number: None

PATIENT
  Age: 62 Year
  Sex: Male
  Weight: 128.1 kg

DRUGS (1)
  1. PREDNISONE [Suspect]
     Indication: CHRONIC OBSTRUCTIVE PULMONARY DISEASE
     Dosage: 40 MG EVERY DAY PO
     Route: 048
     Dates: start: 20080527, end: 20080530

REACTIONS (10)
  - AGGRESSION [None]
  - ANGER [None]
  - DISORIENTATION [None]
  - FEELING OF DESPAIR [None]
  - INSOMNIA [None]
  - LOSS OF CONSCIOUSNESS [None]
  - MANIA [None]
  - SUICIDAL IDEATION [None]
  - TEARFULNESS [None]
  - TOBACCO USER [None]
